FAERS Safety Report 4791161-3 (Version None)
Quarter: 2005Q4

REPORT INFORMATION
  Report Type: 
  Country: None (occurrence: None)
  Receive Date: 20051005
  Receipt Date: 20050917
  Transmission Date: 20060501
  Serious: Yes (Hospitalization)
  Sender: FDA-Public Use
  Company Number: EWC050946006

PATIENT
  Age: 49 Year
  Sex: Female
  Weight: 67 kg

DRUGS (6)
  1. DULOXETINE HYDROCHLORIDE [Suspect]
     Indication: STRESS
     Dosage: 40 MG/2 DAY
     Dates: start: 20040427
  2. DULOXETINE HYDROCHLORIDE [Suspect]
     Indication: URINARY INCONTINENCE
     Dosage: 40 MG/2 DAY
     Dates: start: 20040427
  3. RANITIDINE [Concomitant]
  4. BETAMETHASONE [Concomitant]
  5. GENTAMICINE (GENTAMICINE) [Concomitant]
  6. DIFLUCORTOLONE [Concomitant]

REACTIONS (4)
  - COMA [None]
  - HEADACHE [None]
  - NASOPHARYNGITIS [None]
  - SOMNOLENCE [None]
